FAERS Safety Report 13100879 (Version 1)
Quarter: 2017Q1

REPORT INFORMATION
  Report Type: Spontaneous
  Country: US (occurrence: US)
  Receive Date: 20170110
  Receipt Date: 20170110
  Transmission Date: 20170428
  Serious: Yes (Hospitalization)
  Sender: FDA-Public Use
  Company Number: None

PATIENT
  Age: 66 Year
  Sex: Male
  Weight: 78.1 kg

DRUGS (1)
  1. POMALIDOMIDE [Suspect]
     Active Substance: POMALIDOMIDE
     Indication: PLASMA CELL MYELOMA
     Dosage: MG PO
     Route: 048
     Dates: start: 20160714, end: 20160804

REACTIONS (5)
  - Fatigue [None]
  - Anaemia [None]
  - Thrombocytopenia [None]
  - Plasma cell myeloma [None]
  - Toxicity to various agents [None]

NARRATIVE: CASE EVENT DATE: 20160728
